FAERS Safety Report 8832475 (Version 1)
Quarter: 2012Q4

REPORT INFORMATION
  Report Type: Spontaneous
  Country: US (occurrence: None)
  Receive Date: 20121009
  Receipt Date: 20121009
  Transmission Date: 20130627
  Serious: Yes (Other)
  Sender: FDA-Public Use
  Company Number: None

PATIENT
  Age: 21 Year
  Sex: Male
  Weight: 37.65 kg

DRUGS (2)
  1. OLANZAPINE [Suspect]
     Dates: start: 20110802, end: 20120307
  2. DEPAKOTE [Concomitant]

REACTIONS (4)
  - Crying [None]
  - Aggression [None]
  - Poor quality sleep [None]
  - Emotional disorder [None]
